FAERS Safety Report 10297601 (Version 1)
Quarter: 2014Q3

REPORT INFORMATION
  Report Type: Spontaneous
  Country: US (occurrence: US)
  Receive Date: 20140711
  Receipt Date: 20140711
  Transmission Date: 20150326
  Serious: No
  Sender: FDA-Public Use
  Company Number: US-PFIZER INC-2014190821

PATIENT
  Age: 75 Year
  Sex: Male
  Weight: 79.37 kg

DRUGS (6)
  1. METHADONE [Concomitant]
     Active Substance: METHADONE HYDROCHLORIDE
     Indication: NEURALGIA
     Dosage: UNK
  2. ADVIL PM [Suspect]
     Active Substance: DIPHENHYDRAMINE CITRATE\IBUPROFEN
     Indication: NEURALGIA
     Dosage: 38 MG (IBUPROFEN)/200MG (DIPHENHYDRAMINE CITRATE), UNK
     Route: 048
     Dates: end: 20140707
  3. SYNTHROID [Concomitant]
     Active Substance: LEVOTHYROXINE SODIUM
     Indication: SUPPLEMENTATION THERAPY
  4. ADVIL PM [Suspect]
     Active Substance: DIPHENHYDRAMINE CITRATE\IBUPROFEN
     Indication: INSOMNIA
  5. SYNTHROID [Concomitant]
     Active Substance: LEVOTHYROXINE SODIUM
     Indication: THYROID DISORDER
     Dosage: UNK
  6. MIDODRINE [Concomitant]
     Active Substance: MIDODRINE
     Indication: HYPOTENSION
     Dosage: UNK

REACTIONS (2)
  - Somnolence [Unknown]
  - Hypersomnia [Unknown]

NARRATIVE: CASE EVENT DATE: 20140706
